FAERS Safety Report 18747977 (Version 2)
Quarter: 2021Q4

REPORT INFORMATION
  Report Type: Report from Study
  Country: DE (occurrence: DE)
  Receive Date: 20210115
  Receipt Date: 20211015
  Transmission Date: 20220303
  Serious: Yes (Hospitalization)
  Sender: FDA-Public Use
  Company Number: DE-002147023-NVSC2020DE243817

PATIENT
  Sex: Male

DRUGS (7)
  1. METHOTREXATE [Suspect]
     Active Substance: METHOTREXATE
     Indication: Psoriatic arthropathy
     Dosage: 20 MILLIGRAM, QW (20 MG, QW)
     Route: 058
     Dates: start: 20190205
  2. IBUPROFEN [Suspect]
     Active Substance: IBUPROFEN
     Indication: Psoriatic arthropathy
     Dosage: 600 MILLIGRAM, QD (600 MG, QD)
     Route: 065
     Dates: start: 20190916
  3. DICLOFENAC [Suspect]
     Active Substance: DICLOFENAC
     Indication: Psoriatic arthropathy
     Dosage: 75 MILLIGRAM, QW (75 MG, QW)
     Route: 065
     Dates: start: 20190101, end: 20200115
  4. COSENTYX [Suspect]
     Active Substance: SECUKINUMAB
     Indication: Psoriatic arthropathy
     Dosage: 300 MILLIGRAM, QW (300 MG, QW (TITRATION PHASE) )
     Route: 065
     Dates: start: 20191213
  5. COSENTYX [Suspect]
     Active Substance: SECUKINUMAB
     Dosage: 300 MILLIGRAM, MONTHLY (300 MG, QMO)
     Route: 065
     Dates: end: 20200515
  6. XELJANZ [Concomitant]
     Active Substance: TOFACITINIB CITRATE
     Indication: Product used for unknown indication
     Dosage: 10 MILLIGRAM (10 MG, UNKNOWN)
     Route: 065
     Dates: start: 20190624, end: 20190822
  7. TALTZ [Concomitant]
     Active Substance: IXEKIZUMAB
     Indication: Psoriatic arthropathy
     Dosage: 80 MILLIGRAM (80 MG, Q4W)
     Route: 065
     Dates: start: 20200709

REACTIONS (6)
  - Inguinal hernia [Recovered/Resolved]
  - Nasopharyngitis [Unknown]
  - Pyrexia [Unknown]
  - Bursitis [Unknown]
  - Diarrhoea [Unknown]
  - Pruritus [Unknown]

NARRATIVE: CASE EVENT DATE: 20191224
